FAERS Safety Report 10168935 (Version 2)
Quarter: 2014Q2

REPORT INFORMATION
  Report Type: Spontaneous
  Country: TR (occurrence: TR)
  Receive Date: 20140513
  Receipt Date: 20140521
  Transmission Date: 20141212
  Serious: Yes (Hospitalization, Other)
  Sender: FDA-Public Use
  Company Number: TR-ASTRAZENECA-2014SE30562

PATIENT
  Age: 57 Year
  Sex: Male

DRUGS (1)
  1. ROSUVASTATIN [Suspect]
     Route: 048

REACTIONS (1)
  - Henoch-Schonlein purpura [Recovering/Resolving]
